FAERS Safety Report 7737944-9 (Version None)
Quarter: 2011Q3

REPORT INFORMATION
  Report Type: 
  Country: None (occurrence: None)
  Receive Date: 20110908
  Receipt Date: 20110906
  Transmission Date: 20111222
  Serious: Yes (Other)
  Sender: FDA-Public Use
  Company Number: CH-PFIZER INC-2011208093

PATIENT
  Age: 85 Year
  Sex: Female

DRUGS (1)
  1. CLINDAMYCIN HCL [Suspect]

REACTIONS (2)
  - PNEUMONIA ASPIRATION [None]
  - INCORRECT ROUTE OF DRUG ADMINISTRATION [None]
